FAERS Safety Report 24559323 (Version 1)
Quarter: 2024Q4

REPORT INFORMATION
  Report Type: Spontaneous
  Country: US (occurrence: US)
  Receive Date: 20241029
  Receipt Date: 20241029
  Transmission Date: 20250115
  Serious: No
  Sender: ABBVIE
  Company Number: US-ABBVIE-5979244

PATIENT
  Sex: Female

DRUGS (2)
  1. RINVOQ [Suspect]
     Active Substance: UPADACITINIB
     Indication: Eczema
     Route: 048
  2. DUPIXENT [Suspect]
     Active Substance: DUPILUMAB
     Indication: Eczema
     Dosage: STRENGTH: 300 MG    ?FREQUENCY: QOW
     Route: 065

REACTIONS (3)
  - Illness [Unknown]
  - Eczema [Not Recovered/Not Resolved]
  - Therapeutic product effect decreased [Unknown]
